FAERS Safety Report 4804751-6 (Version None)
Quarter: 2005Q4

REPORT INFORMATION
  Report Type: 
  Country: None (occurrence: None)
  Receive Date: 20051017
  Receipt Date: 20050328
  Transmission Date: 20060501
  Serious: Yes (Other)
  Sender: FDA-Public Use
  Company Number: 805#1#2005-00015

PATIENT
  Age: 10 Day
  Sex: Male

DRUGS (6)
  1. ALPROSTADIL [Suspect]
     Indication: HEART DISEASE CONGENITAL
     Dosage: THE DOSE WAS INCREASED AND DECREASED REPEATEDLY INTRAVENOUS DRIP
     Route: 041
     Dates: start: 20041210, end: 20050318
  2. FLOMOXEF-SODIUM (FLOMOXEF SODIUM) [Concomitant]
  3. LUNG SURFACTANT [Concomitant]
  4. PHENOBARBITAL SODIUM 100MG CAP [Concomitant]
  5. FUROSEMIDE [Concomitant]
  6. SPIRONOLACTONE [Concomitant]

REACTIONS (7)
  - APNOEIC ATTACK [None]
  - ATRIAL SEPTAL DEFECT [None]
  - BLOOD PRESSURE SYSTOLIC DECREASED [None]
  - BODY TEMPERATURE INCREASED [None]
  - HEART RATE INCREASED [None]
  - PULMONARY ARTERY ATRESIA [None]
  - RESPIRATORY RATE INCREASED [None]
